FAERS Safety Report 4536989-X (Version None)
Quarter: 2004Q4

REPORT INFORMATION
  Report Type: 
  Country: None (occurrence: None)
  Receive Date: 20041220
  Receipt Date: 20041216
  Transmission Date: 20050328
  Serious: Yes (Death)
  Sender: FDA-Public Use
  Company Number: HQWYE247504NOV04

PATIENT
  Age: 84 Year
  Sex: Male

DRUGS (5)
  1. AMIODARONE (AMIODARONE, TABLET) [Suspect]
     Indication: ATRIAL FIBRILLATION
     Dosage: 200 MG 1X PER 1 DAY ORAL
     Route: 048
     Dates: start: 20040201, end: 20040727
  2. FUROSEMIDE [Concomitant]
  3. WARFARIN SODIUM [Concomitant]
  4. MADOPAR (BENSERAZIDE HYDROCHLORIDE/LEVODOPA) [Concomitant]
  5. RAMIPRIL [Concomitant]

REACTIONS (2)
  - CARDIAC ARREST [None]
  - PULMONARY FIBROSIS [None]
